FAERS Safety Report 15056797 (Version 1)
Quarter: 2018Q2

REPORT INFORMATION
  Report Type: Spontaneous
  Country: US (occurrence: US)
  Receive Date: 20180604
  Receipt Date: 20180604
  Transmission Date: 20180711
  Serious: Yes (Other)
  Sender: FDA-Public Use
  Company Number: None

PATIENT
  Age: 43 Year
  Sex: Female
  Weight: 100.24 kg

DRUGS (1)
  1. OMNIPAQUE [Suspect]
     Active Substance: IOHEXOL
     Indication: HAEMATURIA
     Route: 042
     Dates: start: 20180505

REACTIONS (4)
  - Swelling face [None]
  - Urticaria [None]
  - Ear swelling [None]
  - Lip swelling [None]

NARRATIVE: CASE EVENT DATE: 20180515
